FAERS Safety Report 24331532 (Version 1)
Quarter: 2024Q3

REPORT INFORMATION
  Report Type: Spontaneous
  Country: US (occurrence: US)
  Receive Date: 20240918
  Receipt Date: 20240918
  Transmission Date: 20241016
  Serious: Yes (Other)
  Sender: STRIDES
  Company Number: US-STRIDES ARCOLAB LIMITED-2024SP008443

PATIENT
  Sex: Female

DRUGS (20)
  1. MYCOPHENOLATE MOFETIL [Suspect]
     Active Substance: MYCOPHENOLATE MOFETIL
     Indication: Lichen planus
     Dosage: UNK
     Route: 065
  2. MYCOPHENOLATE MOFETIL [Suspect]
     Active Substance: MYCOPHENOLATE MOFETIL
     Indication: Vulvovaginal disorder
  3. METHOTREXATE [Suspect]
     Active Substance: METHOTREXATE
     Indication: Lichen planus
     Dosage: UNK
     Route: 065
  4. METHOTREXATE [Suspect]
     Active Substance: METHOTREXATE
     Indication: Vulvovaginal disorder
  5. HYDROXYCHLOROQUINE [Suspect]
     Active Substance: HYDROXYCHLOROQUINE
     Indication: Lichen planus
     Dosage: UNK
     Route: 065
  6. HYDROXYCHLOROQUINE [Suspect]
     Active Substance: HYDROXYCHLOROQUINE
     Indication: Vulvovaginal disorder
  7. TACROLIMUS [Suspect]
     Active Substance: TACROLIMUS
     Indication: Lichen planus
     Dosage: UNK; SYSTEMIC
     Route: 050
  8. TACROLIMUS [Suspect]
     Active Substance: TACROLIMUS
     Indication: Vulvovaginal disorder
     Dosage: UNK
     Route: 061
  9. THALIDOMIDE [Suspect]
     Active Substance: THALIDOMIDE
     Indication: Lichen planus
     Dosage: UNK
     Route: 065
  10. THALIDOMIDE [Suspect]
     Active Substance: THALIDOMIDE
     Indication: Vulvovaginal disorder
  11. ADALIMUMAB [Suspect]
     Active Substance: ADALIMUMAB
     Indication: Lichen planus
     Dosage: UNK
     Route: 065
  12. ADALIMUMAB [Suspect]
     Active Substance: ADALIMUMAB
     Indication: Vulvovaginal disorder
  13. USTEKINUMAB [Suspect]
     Active Substance: USTEKINUMAB
     Indication: Lichen planus
     Dosage: UNK
     Route: 065
  14. USTEKINUMAB [Suspect]
     Active Substance: USTEKINUMAB
     Indication: Vulvovaginal disorder
  15. NALTREXONE [Suspect]
     Active Substance: NALTREXONE
     Indication: Lichen planus
     Dosage: UNK
     Route: 065
  16. NALTREXONE [Suspect]
     Active Substance: NALTREXONE
     Indication: Vulvovaginal disorder
  17. APREMILAST [Suspect]
     Active Substance: APREMILAST
     Indication: Lichen planus
     Dosage: UNK
     Route: 065
  18. APREMILAST [Suspect]
     Active Substance: APREMILAST
     Indication: Vulvovaginal disorder
  19. PIMECROLIMUS [Suspect]
     Active Substance: PIMECROLIMUS
     Indication: Lichen planus
     Dosage: UNK
     Route: 061
  20. PIMECROLIMUS [Suspect]
     Active Substance: PIMECROLIMUS
     Indication: Vulvovaginal disorder

REACTIONS (1)
  - Drug ineffective for unapproved indication [Unknown]
